FAERS Safety Report 4524931-7 (Version None)
Quarter: 2004Q4

REPORT INFORMATION
  Report Type: 
  Country: None (occurrence: None)
  Receive Date: 20041210
  Receipt Date: 20041130
  Transmission Date: 20050328
  Serious: Yes (Other)
  Sender: FDA-Public Use
  Company Number: 2004100256

PATIENT
  Age: 82 Year
  Sex: Male
  Weight: 83.9154 kg

DRUGS (9)
  1. ROLAIDS (MAGNESIUM HYDROXIDE, CALCIUM CARBONATE) [Suspect]
     Indication: ABDOMINAL PAIN UPPER
     Dosage: 1 TABLET 5-6 TIMES QD, ORAL
     Route: 048
     Dates: end: 20041127
  2. GAVISCON [Concomitant]
  3. QUINAPRIL HCL [Concomitant]
  4. METOPROLOL TARTRATE [Concomitant]
  5. ATORVASTATIN (ATORVASTATIN) [Concomitant]
  6. ALLOPURINOL [Concomitant]
  7. CELECOXIB (CELECOXIB) [Concomitant]
  8. TAMSULOSIN HYDROCHLORIDE (TAMSULOSIN HYDROCHLORIDE) [Concomitant]
  9. METAMUCIL (GLUCOSE MONOHYDRATE, ISPAGHULA HUSK) [Concomitant]

REACTIONS (3)
  - CATHETER RELATED COMPLICATION [None]
  - DYSURIA [None]
  - PROSTATE CANCER [None]
